FAERS Safety Report 24019633 (Version 1)
Quarter: 2024Q2

REPORT INFORMATION
  Report Type: Spontaneous
  Country: US (occurrence: US)
  Receive Date: 20240627
  Receipt Date: 20240627
  Transmission Date: 20240715
  Serious: No
  Sender: FDA-Public Use
  Company Number: US-ELI_LILLY_AND_COMPANY-US202406013266

PATIENT
  Sex: Female

DRUGS (2)
  1. EVISTA [Suspect]
     Active Substance: RALOXIFENE HYDROCHLORIDE
     Indication: Neoplasm prophylaxis
     Dosage: UNK, UNKNOWN
     Route: 065
     Dates: start: 2016
  2. EVISTA [Suspect]
     Active Substance: RALOXIFENE HYDROCHLORIDE
     Indication: Bone disorder

REACTIONS (4)
  - Bone disorder [Unknown]
  - Joint injury [Unknown]
  - Hot flush [Unknown]
  - Drug ineffective [Unknown]
